FAERS Safety Report 10571773 (Version 4)
Quarter: 2015Q2

REPORT INFORMATION
  Report Type: Report from Study
  Country: CA (occurrence: CA)
  Receive Date: 20141107
  Receipt Date: 20150511
  Transmission Date: 20150821
  Serious: Yes (Hospitalization, Other)
  Sender: FDA-Public Use
  Company Number: PHHY2013CA015260

PATIENT
  Age: 63 Year
  Sex: Male

DRUGS (14)
  1. CHAMPIX [Interacting]
     Active Substance: VARENICLINE TARTRATE
     Indication: SMOKING CESSATION THERAPY
     Route: 065
  2. METOPROLOL [Concomitant]
     Active Substance: METOPROLOL
     Indication: PRODUCT USED FOR UNKNOWN INDICATION
     Route: 065
  3. ASPIRIN. [Concomitant]
     Active Substance: ASPIRIN
     Indication: PRODUCT USED FOR UNKNOWN INDICATION
     Route: 065
  4. ALTACE [Concomitant]
     Active Substance: RAMIPRIL
     Indication: PRODUCT USED FOR UNKNOWN INDICATION
     Route: 065
  5. LIPITOR [Concomitant]
     Active Substance: ATORVASTATIN CALCIUM
     Indication: PRODUCT USED FOR UNKNOWN INDICATION
     Dosage: 60 UKN, UNK
     Route: 065
  6. NIASPAM [Concomitant]
     Indication: PRODUCT USED FOR UNKNOWN INDICATION
     Route: 065
  7. GLEEVEC [Suspect]
     Active Substance: IMATINIB MESYLATE
     Indication: CHRONIC MYELOID LEUKAEMIA
     Dosage: 400 MG, QD
     Route: 048
     Dates: start: 201102, end: 20130226
  8. GLEEVEC [Interacting]
     Active Substance: IMATINIB MESYLATE
     Dosage: 300 MG, QD (IN THE EVENING)
     Route: 048
     Dates: start: 20130501, end: 201501
  9. RAMIPRIL. [Concomitant]
     Active Substance: RAMIPRIL
     Indication: PRODUCT USED FOR UNKNOWN INDICATION
     Route: 065
  10. PLAVIX [Concomitant]
     Active Substance: CLOPIDOGREL BISULFATE
     Indication: PRODUCT USED FOR UNKNOWN INDICATION
     Route: 065
  11. GLEEVEC [Interacting]
     Active Substance: IMATINIB MESYLATE
     Dosage: 100 MG, TID
     Route: 048
     Dates: start: 201303
  12. GLEEVEC [Interacting]
     Active Substance: IMATINIB MESYLATE
     Dosage: 400 MG, QD
     Route: 048
  13. CLOPIDOGREL [Concomitant]
     Active Substance: CLOPIDOGREL BISULFATE
     Indication: PRODUCT USED FOR UNKNOWN INDICATION
     Route: 065
  14. LIPITOR [Concomitant]
     Active Substance: ATORVASTATIN CALCIUM
     Route: 065

REACTIONS (13)
  - Drug interaction [Unknown]
  - Diarrhoea [Recovered/Resolved]
  - Dyspepsia [Recovering/Resolving]
  - Urticaria [Unknown]
  - Abdominal pain upper [Recovered/Resolved]
  - Feeling abnormal [Recovering/Resolving]
  - Full blood count abnormal [Unknown]
  - Abdominal distension [Recovering/Resolving]
  - Pyrexia [Unknown]
  - Helicobacter infection [Recovered/Resolved]
  - Dyspnoea [Unknown]
  - Gastrooesophageal reflux disease [Unknown]
  - Drug ineffective [Unknown]

NARRATIVE: CASE EVENT DATE: 20130212
